FAERS Safety Report 9354827 (Version 2)
Quarter: 2013Q3

REPORT INFORMATION
  Report Type: Report from Study
  Country: US (occurrence: US)
  Receive Date: 20130619
  Receipt Date: 20130719
  Transmission Date: 20140515
  Serious: Yes (Hospitalization, Disabling, Other)
  Sender: FDA-Public Use
  Company Number: US-PFIZER INC-2009184985

PATIENT
  Age: 52 Year
  Sex: Male
  Weight: 99.77 kg

DRUGS (16)
  1. GLUCOTROL XL [Suspect]
     Indication: DIABETES MELLITUS
     Dosage: 10 MG, 1X/DAY
     Dates: start: 2001
  2. LYRICA [Suspect]
     Indication: DIABETIC NEUROPATHY
     Dosage: 150 MG, 2X/DAY
     Dates: start: 2004
  3. LYRICA [Suspect]
     Dosage: 150 MG, 1X/DAY
  4. NEURONTIN [Suspect]
     Indication: NEUROPATHY PERIPHERAL
     Dosage: UNK
  5. NITROSTAT [Suspect]
     Dosage: UNK
  6. VICODIN [Suspect]
     Indication: PAIN
     Dosage: 10/325 MG EVERY 4 TO 6 HOURS
  7. ASA [Concomitant]
     Dosage: UNK
  8. WELLBUTRIN [Concomitant]
     Dosage: UNK
  9. CYMBALTA [Concomitant]
     Dosage: UNK
  10. LISINOPRIL [Concomitant]
     Dosage: UNK
  11. GLUCOPHAGE [Concomitant]
     Dosage: UNK
  12. RELAFEN [Concomitant]
     Dosage: UNK
  13. DAYPRO [Concomitant]
     Dosage: UNK
  14. TRILEPTAL [Concomitant]
     Dosage: UNK
  15. ACTOS [Concomitant]
     Dosage: UNK
  16. SITAGLIPTIN [Concomitant]
     Dosage: UNK

REACTIONS (10)
  - Foot amputation [Unknown]
  - Carpal tunnel syndrome [Not Recovered/Not Resolved]
  - Diabetic neuropathy [Unknown]
  - Toe amputation [Unknown]
  - Osteoarthritis [Unknown]
  - Wrist surgery [Unknown]
  - Abasia [Unknown]
  - Drug ineffective [Unknown]
  - Dyspnoea [Unknown]
  - Tarsal tunnel syndrome [Unknown]
